FAERS Safety Report 11390128 (Version 1)
Quarter: 2015Q3

REPORT INFORMATION
  Report Type: Spontaneous
  Country: US (occurrence: US)
  Receive Date: 20150818
  Receipt Date: 20150818
  Transmission Date: 20151125
  Serious: Yes (Death)
  Sender: FDA-Public Use
  Company Number: US-BEH-2015053119

PATIENT
  Age: 49 Year
  Sex: Male
  Weight: 93 kg

DRUGS (26)
  1. SODIUM CHLORIDE. [Concomitant]
     Active Substance: SODIUM CHLORIDE
  2. SYMBICORT [Concomitant]
     Active Substance: BUDESONIDE\FORMOTEROL FUMARATE DIHYDRATE
  3. PREDNISONE. [Concomitant]
     Active Substance: PREDNISONE
  4. METFORMIN [Concomitant]
     Active Substance: METFORMIN HYDROCHLORIDE
  5. MEDROL [Concomitant]
     Active Substance: METHYLPREDNISOLONE
  6. ALPRAZOLAM. [Concomitant]
     Active Substance: ALPRAZOLAM
  7. DOXYCYCLINE. [Concomitant]
     Active Substance: DOXYCYCLINE
  8. AZITHROMYCIN [Concomitant]
     Active Substance: AZITHROMYCIN ANHYDROUS
  9. LORAZEPAM. [Concomitant]
     Active Substance: LORAZEPAM
  10. HALOPERIDOL. [Concomitant]
     Active Substance: HALOPERIDOL
  11. LMX [Concomitant]
     Active Substance: LIDOCAINE
  12. ALBUTEROL. [Concomitant]
     Active Substance: ALBUTEROL
  13. SPIRIVA [Concomitant]
     Active Substance: TIOTROPIUM BROMIDE MONOHYDRATE
  14. TEMAZEPAM. [Concomitant]
     Active Substance: TEMAZEPAM
  15. LEVAQUIN [Concomitant]
     Active Substance: LEVOFLOXACIN
  16. METOCLOPRAMIDE. [Concomitant]
     Active Substance: METOCLOPRAMIDE
  17. ZEMAIRA [Suspect]
     Active Substance: .ALPHA.1-PROTEINASE INHIBITOR HUMAN
     Indication: EMPHYSEMA
     Dosage: 60 MG/ML
     Route: 042
  18. DIPHENHYDRAMINE. [Concomitant]
     Active Substance: DIPHENHYDRAMINE
  19. IPRATROPIUM [Concomitant]
     Active Substance: IPRATROPIUM
  20. COMBIVENT [Concomitant]
     Active Substance: ALBUTEROL SULFATE\IPRATROPIUM BROMIDE
  21. OXYGEN. [Concomitant]
     Active Substance: OXYGEN
  22. HALOPERIDOL. [Concomitant]
     Active Substance: HALOPERIDOL
  23. ZEMAIRA [Suspect]
     Active Substance: .ALPHA.1-PROTEINASE INHIBITOR HUMAN
     Indication: ALPHA-1 ANTI-TRYPSIN DEFICIENCY
     Dosage: 60 MG/ML
     Route: 042
  24. EPIPEN [Concomitant]
     Active Substance: EPINEPHRINE
     Indication: ANAPHYLACTIC REACTION
  25. MAGNESIUM [Concomitant]
     Active Substance: MAGNESIUM
  26. HUMULIN NOS [Concomitant]
     Active Substance: INSULIN HUMAN

REACTIONS (1)
  - Death [Fatal]

NARRATIVE: CASE EVENT DATE: 20150802
